FAERS Safety Report 5137031-2 (Version None)
Quarter: 2006Q4

REPORT INFORMATION
  Report Type: 
  Country: None (occurrence: None)
  Receive Date: 20061024
  Receipt Date: 20061024
  Transmission Date: 20070319
  Serious: Yes (Other)
  Sender: FDA-Public Use
  Company Number: None

PATIENT
  Sex: Female
  Weight: 56.6996 kg

DRUGS (2)
  1. ORTHO EVRA [Suspect]
     Indication: MENSTRUAL DISORDER
     Dosage: 1 PATCH  EVERY 2 WKS
     Dates: start: 20031020
  2. ORTHO EVRA [Suspect]
     Indication: MENSTRUAL DISORDER
     Dosage: 1 PATCH  EVERY 2 WKS
     Dates: start: 20040603

REACTIONS (7)
  - ANAEMIA [None]
  - CONDITION AGGRAVATED [None]
  - ENDOMETRIOSIS [None]
  - HEADACHE [None]
  - MENORRHAGIA [None]
  - MENSTRUATION IRREGULAR [None]
  - VAGINAL HAEMORRHAGE [None]
